FAERS Safety Report 8160452-0 (Version None)
Quarter: 2012Q1

REPORT INFORMATION
  Report Type: 
  Country: None (occurrence: None)
  Receive Date: 20120223
  Receipt Date: 20120215
  Transmission Date: 20120608
  Serious: Yes (Hospitalization)
  Sender: FDA-Public Use
  Company Number: US-US-EMD SERONO, INC.-7089440

PATIENT
  Sex: Female

DRUGS (4)
  1. REBIF [Suspect]
     Route: 058
     Dates: start: 20120213
  2. REBIF [Suspect]
     Indication: PRODUCT USED FOR UNKNOWN INDICATION
     Route: 058
     Dates: start: 20110812, end: 20110923
  3. REBIF [Suspect]
     Route: 058
     Dates: start: 20110928
  4. REBIF [Suspect]
     Route: 058
     Dates: end: 20120101

REACTIONS (5)
  - CELLULITIS STAPHYLOCOCCAL [None]
  - HEAD DISCOMFORT [None]
  - TREMOR [None]
  - ACNE [None]
  - FATIGUE [None]
